FAERS Safety Report 16623701 (Version 1)
Quarter: 2019Q3

REPORT INFORMATION
  Report Type: Spontaneous
  Country: US (occurrence: US)
  Receive Date: 20190724
  Receipt Date: 20190724
  Transmission Date: 20191004
  Serious: No
  Sender: FDA-Public Use
  Company Number: US-ACCORD-101994

PATIENT
  Age: 68 Year
  Sex: Female
  Weight: 96.62 kg

DRUGS (17)
  1. KORLYM [Concomitant]
     Active Substance: MIFEPRISTONE
     Indication: PITUITARY-DEPENDENT CUSHING^S SYNDROME
  2. FETZIMA [Concomitant]
     Active Substance: LEVOMILNACIPRAN HYDROCHLORIDE
  3. INSULIN HUMAN [Concomitant]
     Active Substance: INSULIN HUMAN
  4. PANTOPRAZOLE [Concomitant]
     Active Substance: PANTOPRAZOLE
  5. KLONOPIN [Concomitant]
     Active Substance: CLONAZEPAM
  6. LEVOTHYROXINE/LEVOTHYROXINE SODIUM [Concomitant]
  7. AMITRIPTYLINE [Suspect]
     Active Substance: AMITRIPTYLINE
     Indication: PRODUCT USED FOR UNKNOWN INDICATION
     Dates: start: 20180418
  8. HYDROCHLOROTHIAZIDE. [Concomitant]
     Active Substance: HYDROCHLOROTHIAZIDE
  9. LANTUS [Concomitant]
     Active Substance: INSULIN GLARGINE
  10. GABAPENTIN. [Concomitant]
     Active Substance: GABAPENTIN
  11. ESTRADIOL. [Concomitant]
     Active Substance: ESTRADIOL
  12. ACETYLSALICYLIC ACID [Concomitant]
     Active Substance: ASPIRIN
  13. ACARBOSE. [Concomitant]
     Active Substance: ACARBOSE
  14. SINGULAIR [Concomitant]
     Active Substance: MONTELUKAST SODIUM
  15. LOMOTIL [Concomitant]
     Active Substance: ATROPINE SULFATE\DIPHENOXYLATE HYDROCHLORIDE
  16. TRULICITY [Concomitant]
     Active Substance: DULAGLUTIDE
  17. BENTYL [Concomitant]
     Active Substance: DICYCLOMINE HYDROCHLORIDE

REACTIONS (10)
  - Tic [Unknown]
  - Blood glucose fluctuation [Unknown]
  - Hypoaesthesia [Unknown]
  - Joint swelling [Unknown]
  - Fall [Unknown]
  - Dizziness [Unknown]
  - Weight increased [Unknown]
  - Back pain [Unknown]
  - Muscle twitching [Unknown]
  - Abdominal discomfort [Unknown]
